FAERS Safety Report 20289299 (Version 2)
Quarter: 2022Q1

REPORT INFORMATION
  Report Type: Spontaneous
  Country: JP (occurrence: JP)
  Receive Date: 20220104
  Receipt Date: 20220122
  Transmission Date: 20220424
  Serious: Yes (Hospitalization, Other)
  Sender: FDA-Public Use
  Company Number: JP-AMGEN-JPNSP2021206120

PATIENT
  Age: 83 Year
  Sex: Female

DRUGS (13)
  1. REPATHA [Suspect]
     Active Substance: EVOLOCUMAB
     Indication: Type IIa hyperlipidaemia
     Dosage: 420 MILLIGRAM
     Route: 058
  2. MINODRONIC ACID [Concomitant]
     Active Substance: MINODRONIC ACID
  3. AMITIZA [Concomitant]
     Active Substance: LUBIPROSTONE
  4. LILIA [Concomitant]
  5. LIVALO [Concomitant]
     Active Substance: PITAVASTATIN CALCIUM
  6. NORVASC [Concomitant]
     Active Substance: AMLODIPINE BESYLATE
  7. ZETIA [Concomitant]
     Active Substance: EZETIMIBE
  8. ONEALFA [Concomitant]
     Active Substance: ALFACALCIDOL
  9. PLAVIX [Concomitant]
     Active Substance: CLOPIDOGREL BISULFATE
  10. METHYLCOBALAMIN [Concomitant]
     Active Substance: METHYLCOBALAMIN
  11. MAGNESIUM OXIDE [Concomitant]
     Active Substance: MAGNESIUM OXIDE
  12. LOXOPROFEN SODIUM [Concomitant]
     Active Substance: LOXOPROFEN SODIUM
  13. IRESSA [Concomitant]
     Active Substance: GEFITINIB

REACTIONS (2)
  - Spondylitic myelopathy [Not Recovered/Not Resolved]
  - Lung neoplasm malignant [Not Recovered/Not Resolved]
